FAERS Safety Report 6166411-1 (Version None)
Quarter: 2009Q2

REPORT INFORMATION
  Report Type: 
  Country: None (occurrence: None)
  Receive Date: 20090424
  Receipt Date: 20090417
  Transmission Date: 20091009
  Serious: Yes (Other)
  Sender: FDA-Public Use
  Company Number: US-BAYER-200911234BCC

PATIENT
  Age: 69 Year
  Sex: Female
  Weight: 52 kg

DRUGS (8)
  1. BAYER EXTRA STRENGTH BACK AND BODY PAIN [Suspect]
     Indication: BACK PAIN
     Dosage: UNIT DOSE: 1 DF
     Route: 048
     Dates: start: 20070101
  2. DARVOCET [Concomitant]
  3. PERCOCET [Concomitant]
  4. CARAFATE [Concomitant]
  5. XALATAN [Concomitant]
  6. ASACOL [Concomitant]
  7. ACIPHEX [Concomitant]
  8. LORAZEPAM [Concomitant]

REACTIONS (8)
  - DIVERTICULITIS [None]
  - DRUG DEPENDENCE [None]
  - GASTROOESOPHAGEAL REFLUX DISEASE [None]
  - GLAUCOMA [None]
  - HAEMORRHAGE [None]
  - HIATUS HERNIA [None]
  - TRANSIENT ISCHAEMIC ATTACK [None]
  - ULCER [None]
